FAERS Safety Report 4700393-1 (Version None)
Quarter: 2005Q2

REPORT INFORMATION
  Report Type: 
  Country: None (occurrence: None)
  Receive Date: 20050627
  Receipt Date: 20010827
  Transmission Date: 20051028
  Serious: Yes (Hospitalization)
  Sender: FDA-Public Use
  Company Number: FR-ROCHE-266788

PATIENT
  Sex: Male
  Weight: 3.7 kg

DRUGS (12)
  1. INVIRASE [Suspect]
     Indication: HIV INFECTION
     Dates: start: 20000106
  2. NORVIR [Suspect]
     Indication: HIV INFECTION
     Dates: start: 20000106
  3. EPIVIR [Suspect]
     Indication: HIV INFECTION
     Dates: start: 20000106
  4. ZERIT [Suspect]
     Indication: HIV INFECTION
     Dates: start: 20000106
  5. RETROVIR [Suspect]
     Indication: HIV INFECTION
     Dates: start: 20000915, end: 20000915
  6. ZOVIRAX [Concomitant]
  7. AMOXICILLIN [Concomitant]
  8. NETROMYCIN [Concomitant]
  9. PRODAFALGAN [Concomitant]
  10. IRON NOS [Concomitant]
  11. SPASFON [Concomitant]
  12. GYNO-PEVARYL [Concomitant]

REACTIONS (11)
  - BLOOD CREATINE PHOSPHOKINASE INCREASED [None]
  - BLOOD LACTIC ACID INCREASED [None]
  - CAESAREAN SECTION [None]
  - DRUG EXPOSURE DURING PREGNANCY [None]
  - FAILURE TO THRIVE [None]
  - GROWTH RETARDATION [None]
  - HAEMANGIOMA [None]
  - HYPERTRIGLYCERIDAEMIA [None]
  - NEONATAL DISORDER [None]
  - NEUTROPENIA [None]
  - NEUTROPENIA NEONATAL [None]
